FAERS Safety Report 4424361-2 (Version None)
Quarter: 2004Q3

REPORT INFORMATION
  Report Type: 
  Country: None (occurrence: None)
  Receive Date: 20040810
  Receipt Date: 20040810
  Transmission Date: 20050211
  Serious: Yes (Other)
  Sender: FDA-Public Use
  Company Number: None

PATIENT
  Sex: Female
  Weight: 65.7716 kg

DRUGS (1)
  1. CELEXA [Suspect]
     Indication: SEASONAL AFFECTIVE DISORDER
     Dosage: 200 MG ONCE A DAY
     Dates: start: 20040106, end: 20040720

REACTIONS (7)
  - AMNESIA [None]
  - HYPERSOMNIA [None]
  - IMPAIRED WORK ABILITY [None]
  - IRRITABILITY [None]
  - LOSS OF LIBIDO [None]
  - WEIGHT [None]
  - WEIGHT INCREASED [None]
